FAERS Safety Report 9399488 (Version 1)
Quarter: 2013Q3

REPORT INFORMATION
  Report Type: Spontaneous
  Country: US (occurrence: None)
  Receive Date: 20130709
  Receipt Date: 20130709
  Transmission Date: 20140515
  Serious: Yes (Other)
  Sender: FDA-Public Use
  Company Number: 2013P1010824

PATIENT
  Age: 28 Year
  Sex: Female
  Weight: 77.11 kg

DRUGS (6)
  1. FLUOXETINE [Suspect]
     Indication: DEPRESSION
     Route: 048
     Dates: start: 20120706
  2. NORTRIPTYLINE [Concomitant]
  3. CLONAZEPAM [Concomitant]
  4. VICODIN [Concomitant]
  5. PROPRANOLOL [Concomitant]
  6. TRAMADOL [Concomitant]

REACTIONS (1)
  - Transient global amnesia [None]
